FAERS Safety Report 10151210 (Version 1)
Quarter: 2014Q2

REPORT INFORMATION
  Report Type: Spontaneous
  Country: US (occurrence: US)
  Receive Date: 20140502
  Receipt Date: 20140502
  Transmission Date: 20141212
  Serious: No
  Sender: FDA-Public Use
  Company Number: US-ASTRAZENECA-2013SE88725

PATIENT
  Age: 55 Year
  Sex: Female
  Weight: 71.7 kg

DRUGS (7)
  1. PRILOSEC OTC [Suspect]
     Indication: GASTROOESOPHAGEAL REFLUX DISEASE
     Dosage: UNKNOWN DAILY
     Route: 048
     Dates: start: 20131118
  2. ESTRADOIL [Concomitant]
     Indication: MENOPAUSE
     Route: 048
     Dates: start: 201302
  3. PROGESTERONE [Concomitant]
     Indication: MENOPAUSE
     Route: 048
     Dates: start: 201302, end: 201307
  4. ALPRAZOLAM [Concomitant]
     Indication: ANXIETY
     Dosage: 1MG EVERY 4 TO 6 HOURS
     Route: 048
     Dates: start: 1993
  5. ALPRAZOLAM [Concomitant]
     Indication: PANIC DISORDER
     Dosage: 1MG EVERY 4 TO 6 HOURS
     Route: 048
     Dates: start: 1993
  6. CITALOPRAM [Concomitant]
     Indication: ANXIETY
     Route: 048
     Dates: start: 20131117
  7. CITALOPRAM [Concomitant]
     Indication: HOT FLUSH
     Route: 048
     Dates: start: 20131117

REACTIONS (3)
  - Throat irritation [Unknown]
  - Nausea [Unknown]
  - Abdominal discomfort [Unknown]
